FAERS Safety Report 20317688 (Version 2)
Quarter: 2022Q1

REPORT INFORMATION
  Report Type: Spontaneous
  Country: US (occurrence: US)
  Receive Date: 20220110
  Receipt Date: 20220110
  Transmission Date: 20220424
  Serious: Yes (Hospitalization)
  Sender: FDA-Public Use
  Company Number: US-CELGENE-USA-20220101029

PATIENT
  Sex: Male

DRUGS (2)
  1. THALOMID [Suspect]
     Active Substance: THALIDOMIDE
     Indication: Primary amyloidosis
     Dosage: 100 MILLIGRAM
     Route: 048
     Dates: start: 202104
  2. THALOMID [Suspect]
     Active Substance: THALIDOMIDE
     Indication: Plasma cell myeloma

REACTIONS (2)
  - Cardiac disorder [Unknown]
  - Sepsis [Unknown]

NARRATIVE: CASE EVENT DATE: 20210101
